FAERS Safety Report 4398435-9 (Version None)
Quarter: 2004Q3

REPORT INFORMATION
  Report Type: 
  Country: None (occurrence: None)
  Receive Date: 20040715
  Receipt Date: 20040326
  Transmission Date: 20050211
  Serious: Yes (Other)
  Sender: FDA-Public Use
  Company Number: FR-ROCHE-362999

PATIENT
  Age: 15 Year
  Sex: Male
  Weight: 54 kg

DRUGS (2)
  1. ROACCUTANE [Suspect]
     Indication: ACNE
     Route: 048
     Dates: start: 20011101, end: 20021231
  2. ROACCUTANE [Suspect]
     Route: 048
     Dates: start: 20030415, end: 20030915

REACTIONS (6)
  - ACNE PUSTULAR [None]
  - ASTHMA [None]
  - INFLUENZA LIKE ILLNESS [None]
  - RASH PUSTULAR [None]
  - SCAR [None]
  - SKIN NECROSIS [None]
